FAERS Safety Report 8037254-9 (Version None)
Quarter: 2012Q1

REPORT INFORMATION
  Report Type: 
  Country: None (occurrence: None)
  Receive Date: 20120109
  Receipt Date: 20111227
  Transmission Date: 20120608
  Serious: Yes (Life-Threatening)
  Sender: FDA-Public Use
  Company Number: 1124038

PATIENT
  Age: 75 Year
  Sex: Male

DRUGS (6)
  1. RIFADIN [Suspect]
     Indication: ENDOCARDITIS
     Dosage: 600 MG MILLIGRAM(S), INTRAVENOUS (NOT OTHERWISE SPECIFIED)
     Route: 042
     Dates: start: 20111008, end: 20111102
  2. GENTAMICIN SULFATE [Suspect]
     Indication: ENDOCARDITIS
     Dosage: 240 MG MILLIGRAM(S), INTRAVENOUS (NOT OTHERWISE SPECIFIED)
     Route: 042
     Dates: start: 20111007, end: 20111020
  3. PANTOPRAZOLE SODIUM [Suspect]
     Indication: PROPHYLAXIS AGAINST GASTROINTESTINAL ULCER
     Dosage: 20 MG MILLIGRAM(S), ORAL
     Route: 048
     Dates: start: 20090101, end: 20111107
  4. ROCEPHIN [Suspect]
     Indication: ENDOCARDITIS
     Dosage: 6 G GRAM(S), INTRAVENOUS (NOT OTHERWISE SPECIFIED)
     Route: 042
     Dates: start: 20111102, end: 20111104
  5. CUBICIN [Suspect]
     Indication: ENDOCARDITIS
     Dosage: 300 MG MILLIGRAM(S), INTRAVENOUS (NOT OTHERWISE SPECIFIED)
     Route: 042
     Dates: start: 20111102, end: 20111105
  6. VANCOMYCIN HYDROCHLORIDE [Suspect]
     Indication: ENDOCARDITIS
     Dosage: 2 G GRAM(S), INTRAVENOUS (NOT OTHERWISE SPECIFIED)
     Route: 042
     Dates: start: 20111007, end: 20111102

REACTIONS (1)
  - DRUG RASH WITH EOSINOPHILIA AND SYSTEMIC SYMPTOMS [None]
